FAERS Safety Report 14242731 (Version 1)
Quarter: 2017Q4

REPORT INFORMATION
  Report Type: Spontaneous
  Country: GB (occurrence: GB)
  Receive Date: 20171201
  Receipt Date: 20171201
  Transmission Date: 20180321
  Serious: Yes (Other)
  Sender: FDA-Public Use
  Company Number: GB-009507513-1711GBR012456

PATIENT
  Sex: Female

DRUGS (2)
  1. REGAINE [Suspect]
     Active Substance: MINOXIDIL
     Dosage: UNK
     Route: 065
  2. PROPECIA [Suspect]
     Active Substance: FINASTERIDE
     Route: 065

REACTIONS (3)
  - Ovulation disorder [Unknown]
  - Abortion spontaneous [Unknown]
  - Exposure via body fluid [Recovered/Resolved]
